FAERS Safety Report 9270934 (Version 1)
Quarter: 2013Q2

REPORT INFORMATION
  Report Type: Spontaneous
  Country: GB (occurrence: GB)
  Receive Date: 20130506
  Receipt Date: 20130506
  Transmission Date: 20140414
  Serious: Yes (Other)
  Sender: FDA-Public Use
  Company Number: GB-AMGEN-GBRSP2013030348

PATIENT
  Age: 56 Year
  Sex: Female
  Weight: 56 kg

DRUGS (9)
  1. PROLIA [Suspect]
     Indication: OSTEOPOROSIS
     Dosage: 60 MG, UNK
     Dates: start: 20110211, end: 20120211
  2. CALCICHEW D3 [Concomitant]
     Dosage: 1 DF, BID
  3. CLARITHROMYCIN [Concomitant]
     Dosage: 250 MG, BID
     Dates: start: 20121127
  4. DOSULEPIN HYDROCHLORIDE [Concomitant]
     Dosage: 150 MG, QD
  5. MOVICOL                            /01625101/ [Concomitant]
     Dosage: 1 DF, QD
     Dates: start: 20100618
  6. NEOCLARITYN [Concomitant]
     Indication: RHINITIS PERENNIAL
     Dosage: 5 MG, QD
     Dates: start: 20111027
  7. PARACETAMOL [Concomitant]
     Indication: PAIN
     Dosage: 1 G, UNK
     Dates: start: 20100618
  8. SERETIDE [Concomitant]
     Dosage: 250 MUG, BID
  9. VENTOLIN                           /00139501/ [Concomitant]
     Indication: WHEEZING
     Dosage: 2 DF, UNK
     Route: 055

REACTIONS (1)
  - Pruritus generalised [Not Recovered/Not Resolved]
